FAERS Safety Report 8633079 (Version 4)
Quarter: 2013Q2

REPORT INFORMATION
  Report Type: Report from Study
  Country: CA (occurrence: CA)
  Receive Date: 20120625
  Receipt Date: 20130517
  Transmission Date: 20140414
  Serious: Yes (Death, Hospitalization, Other)
  Sender: FDA-Public Use
  Company Number: PHHY2012CA053002

PATIENT
  Sex: Female

DRUGS (15)
  1. ACLASTA [Suspect]
     Indication: OSTEOPOROSIS
     Dosage: UNK
     Route: 042
     Dates: start: 20100702
  2. ACLASTA [Suspect]
     Dosage: UNK
     Route: 042
     Dates: start: 20110708
  3. ACLASTA [Suspect]
     Dosage: UNK
     Route: 042
     Dates: start: 20120709
  4. SYNTHROID [Concomitant]
  5. METOPROLOL [Concomitant]
  6. CANDESARTAN [Concomitant]
  7. RITUXIMAB [Concomitant]
  8. METHOTREXATE [Concomitant]
  9. HYDROCHLOROTHIAZIDE [Concomitant]
  10. FOLIC ACID [Concomitant]
  11. MULTIVITAMINS [Concomitant]
  12. CALCIUM [Concomitant]
  13. VITAMIN D [Concomitant]
  14. DOCUSATE [Concomitant]
  15. NORTRIPTYLINE [Concomitant]

REACTIONS (5)
  - Death [Fatal]
  - Fibula fracture [Recovering/Resolving]
  - Fall [Recovering/Resolving]
  - Amnesia [Unknown]
  - Amyotrophic lateral sclerosis [Unknown]
